FAERS Safety Report 9571202 (Version 1)
Quarter: 2013Q3

REPORT INFORMATION
  Report Type: Spontaneous
  Country: US (occurrence: None)
  Receive Date: 20130927
  Receipt Date: 20130927
  Transmission Date: 20140515
  Serious: Yes (Other)
  Sender: FDA-Public Use
  Company Number: 2013P1019465

PATIENT
  Age: 49 Year
  Sex: Female
  Weight: 51.71 kg

DRUGS (13)
  1. PROMETHAZINE [Suspect]
     Indication: CHOLELITHIASIS
     Route: 042
     Dates: start: 201308, end: 201308
  2. TIROSINT [Concomitant]
  3. VITAMIN B1 [Concomitant]
  4. GALACTAN [Concomitant]
  5. HCL ACTIVATOR [Concomitant]
  6. HCL [Concomitant]
  7. VITAMIN D3 SERUM [Concomitant]
  8. VITAMIN E [Concomitant]
  9. MAXB-ND (B COMPLEX) [Concomitant]
  10. GALLBLADDER-ND  PROBIOTIC [Concomitant]
  11. LIVER-ND [Concomitant]
  12. INTESTICIDIN [Concomitant]
  13. MMUNO-ND [Concomitant]

REACTIONS (14)
  - Contusion [None]
  - Vision blurred [None]
  - Coeliac disease [None]
  - Swollen tongue [None]
  - Hyperhidrosis [None]
  - Dermatitis herpetiformis [None]
  - Syncope [None]
  - Ataxia [None]
  - Nausea [None]
  - Constipation [None]
  - Memory impairment [None]
  - Pruritus [None]
  - Injection site pain [None]
  - Screaming [None]
